FAERS Safety Report 15390267 (Version 1)
Quarter: 2018Q3

REPORT INFORMATION
  Report Type: Spontaneous
  Country: DE (occurrence: DE)
  Receive Date: 20180917
  Receipt Date: 20180917
  Transmission Date: 20181010
  Serious: Yes (Other)
  Sender: FDA-Public Use
  Company Number: PHHY2017DE156402

PATIENT
  Sex: Female

DRUGS (2)
  1. TASIGNA [Suspect]
     Active Substance: NILOTINIB
     Indication: CHRONIC MYELOID LEUKAEMIA
     Dosage: 4 DF, QD
     Route: 048
     Dates: start: 20161124
  2. TASIGNA [Suspect]
     Active Substance: NILOTINIB
     Dosage: 450 MG, QD
     Route: 065

REACTIONS (10)
  - Myositis [Unknown]
  - Intestinal ulcer [Recovered/Resolved]
  - Rash [Unknown]
  - Myalgia [Unknown]
  - Extrasystoles [Recovering/Resolving]
  - Myocarditis [Unknown]
  - Lipoedema [Unknown]
  - Osteitis [Unknown]
  - Arthritis [Unknown]
  - Pericardial effusion [Not Recovered/Not Resolved]

NARRATIVE: CASE EVENT DATE: 2016
